FAERS Safety Report 10449079 (Version 1)
Quarter: 2014Q3

REPORT INFORMATION
  Report Type: Spontaneous
  Country: US (occurrence: None)
  Receive Date: 20140911
  Receipt Date: 20140911
  Transmission Date: 20150326
  Serious: No
  Sender: FDA-Public Use
  Company Number: None

PATIENT
  Age: 74 Year
  Sex: Female
  Weight: 64.86 kg

DRUGS (4)
  1. HYCHLOROTHIAZIDE [Concomitant]
  2. VALSARTAN. [Suspect]
     Active Substance: VALSARTAN
     Indication: HYPERTENSION
     Dosage: 1 PILL ONCE DAILY ORAL
     Route: 048
     Dates: start: 20140801, end: 20140829
  3. ASA [Concomitant]
     Active Substance: ASPIRIN
  4. MUCINEX [Concomitant]
     Active Substance: GUAIFENESIN

REACTIONS (4)
  - Epistaxis [None]
  - Headache [None]
  - Blood pressure increased [None]
  - Product substitution issue [None]

NARRATIVE: CASE EVENT DATE: 201408
